FAERS Safety Report 6902929-9 (Version None)
Quarter: 2010Q3

REPORT INFORMATION
  Report Type: 
  Country: None (occurrence: None)
  Receive Date: 20100803
  Receipt Date: 20080805
  Transmission Date: 20110219
  Serious: Yes (Other)
  Sender: FDA-Public Use
  Company Number: US-PFIZER INC-2008048383

PATIENT
  Sex: Female
  Weight: 64.4 kg

DRUGS (11)
  1. LYRICA [Suspect]
     Indication: FIBROMYALGIA
     Route: 048
     Dates: start: 20071201
  2. LYRICA [Suspect]
     Indication: SCIATICA
  3. ZYRTEC [Suspect]
  4. WELLBUTRIN XL [Concomitant]
  5. NEFAZODONE HCL [Concomitant]
  6. PROTONIX [Concomitant]
  7. COLACE [Concomitant]
  8. FLEXERIL [Concomitant]
  9. ASTHALIN [Concomitant]
  10. LOVAZA [Concomitant]
  11. CALCIUM [Concomitant]

REACTIONS (5)
  - BLOOD CHOLESTEROL INCREASED [None]
  - DRUG INEFFECTIVE [None]
  - FATIGUE [None]
  - OEDEMA PERIPHERAL [None]
  - PAIN [None]
